FAERS Safety Report 13259728 (Version 3)
Quarter: 2017Q1

REPORT INFORMATION
  Report Type: Report from Study
  Country: PL (occurrence: PL)
  Receive Date: 20170222
  Receipt Date: 20170329
  Transmission Date: 20170428
  Serious: Yes (Hospitalization)
  Sender: FDA-Public Use
  Company Number: PL-PFIZER INC-2017050832

PATIENT
  Age: 47 Year
  Sex: Female
  Weight: 84 kg

DRUGS (2)
  1. LETROX [Concomitant]
     Active Substance: LEVOTHYROXINE SODIUM
     Indication: HYPOTHYROIDISM
     Dosage: 125 UG, 1X/DAY
     Route: 048
     Dates: start: 20101010
  2. DOCETAXEL. [Suspect]
     Active Substance: DOCETAXEL
     Indication: NON-SMALL CELL LUNG CANCER
     Dosage: 148.5 MG, EVERY 3 WEEKS
     Route: 042
     Dates: start: 20161124, end: 20161215

REACTIONS (1)
  - Headache [Recovered/Resolved]

NARRATIVE: CASE EVENT DATE: 20170124
